FAERS Safety Report 7603236-1 (Version None)
Quarter: 2011Q3

REPORT INFORMATION
  Report Type: 
  Country: None (occurrence: None)
  Receive Date: 20110711
  Receipt Date: 20110711
  Transmission Date: 20111222
  Serious: Yes (Hospitalization)
  Sender: FDA-Public Use
  Company Number: None

PATIENT
  Sex: Male
  Weight: 106 kg

DRUGS (2)
  1. PAMIDRONATE DISODIUM [Suspect]
     Dosage: 90 MG
     Dates: end: 20021218
  2. DEXAMETHASONE [Suspect]
     Dosage: 360 MG
     Dates: end: 20021216

REACTIONS (1)
  - MYELODYSPLASTIC SYNDROME [None]
